FAERS Safety Report 17055154 (Version 1)
Quarter: 2019Q4

REPORT INFORMATION
  Report Type: Spontaneous
  Country: US (occurrence: US)
  Receive Date: 20191120
  Receipt Date: 20191120
  Transmission Date: 20200122
  Serious: No
  Sender: FDA-Public Use
  Company Number: US-EISAI MEDICAL RESEARCH-EC-2019-065238

PATIENT
  Age: 61 Year
  Sex: Female

DRUGS (1)
  1. BELVIQ [Suspect]
     Active Substance: LORCASERIN HYDROCHLORIDE
     Indication: WEIGHT DECREASED
     Dosage: DOSAGE AND FREQUENCY UNKNOWN
     Route: 048

REACTIONS (4)
  - Thinking abnormal [Unknown]
  - Respiratory disorder [Unknown]
  - Hypotension [Unknown]
  - Euphoric mood [Unknown]
